FAERS Safety Report 16229663 (Version 1)
Quarter: 2019Q2

REPORT INFORMATION
  Report Type: Spontaneous
  Country: US (occurrence: US)
  Receive Date: 20190423
  Receipt Date: 20190423
  Transmission Date: 20190711
  Serious: Yes (Other)
  Sender: FDA-Public Use
  Company Number: US-COLGATE PALMOLIVE COMPANY-20190401093

PATIENT
  Sex: Male

DRUGS (1)
  1. COLGATE BAKING SODA AND PEROXIDE WHITENING BRISK MINT [Suspect]
     Active Substance: SODIUM MONOFLUOROPHOSPHATE
     Dosage: UNKNOWN DOSE

REACTIONS (1)
  - Colitis ulcerative [Unknown]
